FAERS Safety Report 14329785 (Version 1)
Quarter: 2017Q4

REPORT INFORMATION
  Report Type: Spontaneous
  Country: MY (occurrence: MY)
  Receive Date: 20171227
  Receipt Date: 20171227
  Transmission Date: 20180321
  Serious: Yes (Other)
  Sender: FDA-Public Use
  Company Number: MY-PFIZER INC-2017542479

PATIENT
  Age: 16 Day
  Sex: Male

DRUGS (1)
  1. PROSTIN VR PEDIATRIC [Suspect]
     Active Substance: ALPROSTADIL
     Indication: PULMONARY VALVE STENOSIS
     Route: 042

REACTIONS (1)
  - Necrotising enterocolitis neonatal [Unknown]
